FAERS Safety Report 5906113-7 (Version None)
Quarter: 2008Q4

REPORT INFORMATION
  Report Type: 
  Country: None (occurrence: None)
  Receive Date: 20081002
  Receipt Date: 20080924
  Transmission Date: 20090506
  Serious: Yes (Other)
  Sender: FDA-Public Use
  Company Number: PHHY2008DE15676

PATIENT
  Sex: Female
  Weight: 80 kg

DRUGS (2)
  1. EXJADE [Suspect]
     Indication: SERUM FERRITIN INCREASED
     Dosage: 500 MG, BID
     Route: 048
     Dates: start: 20071027, end: 20080524
  2. DICLOFENAC [Interacting]
     Indication: ARTHROPATHY
     Dosage: 50 MG, BID
     Route: 048
     Dates: start: 20080421, end: 20080524

REACTIONS (5)
  - AMMONIA INCREASED [None]
  - DRUG INTERACTION [None]
  - HEPATIC ENCEPHALOPATHY [None]
  - HEPATITIS TOXIC [None]
  - LIVER FUNCTION TEST ABNORMAL [None]
